FAERS Safety Report 8948286 (Version 2)
Quarter: 2012Q4

REPORT INFORMATION
  Report Type: 
  Country: IN (occurrence: IN)
  Receive Date: 20121206
  Receipt Date: 20121217
  Transmission Date: 20130627
  Serious: Yes (Life-Threatening)
  Sender: FDA-Public Use
  Company Number: PHHY2012IN111236

PATIENT
  Sex: Male

DRUGS (2)
  1. NILOTINIB [Suspect]
     Indication: CHRONIC MYELOID LEUKAEMIA
     Dosage: 150 mg, BID
     Route: 048
  2. DASATINIB [Concomitant]

REACTIONS (2)
  - Blast cell crisis [Recovering/Resolving]
  - Malignant neoplasm progression [Recovering/Resolving]
